FAERS Safety Report 7491213-3 (Version None)
Quarter: 2011Q2

REPORT INFORMATION
  Report Type: 
  Country: None (occurrence: None)
  Receive Date: 20110519
  Receipt Date: 20110516
  Transmission Date: 20111010
  Serious: Yes (Hospitalization, Other)
  Sender: FDA-Public Use
  Company Number: FR-PFIZER INC-2011104026

PATIENT
  Age: 91 Year
  Sex: Male

DRUGS (3)
  1. OXAZEPAM [Suspect]
     Dosage: 80 MG, SINGLE
     Route: 048
     Dates: start: 20110413, end: 20110413
  2. ZOLOFT [Suspect]
     Dosage: 50 MG, 1X/DAY
     Route: 048
     Dates: start: 20110101, end: 20110418
  3. PROPRANOLOL [Concomitant]

REACTIONS (5)
  - URINARY RETENTION [None]
  - CONFUSIONAL STATE [None]
  - ABNORMAL BEHAVIOUR [None]
  - BENIGN PROSTATIC HYPERPLASIA [None]
  - GENERAL PHYSICAL HEALTH DETERIORATION [None]
